FAERS Safety Report 10608780 (Version 1)
Quarter: 2014Q4

REPORT INFORMATION
  Report Type: Spontaneous
  Country: PT (occurrence: PT)
  Receive Date: 20141125
  Receipt Date: 20141125
  Transmission Date: 20150529
  Serious: Yes (Hospitalization)
  Sender: FDA-Public Use
  Company Number: PT-GLAXOSMITHKLINE-PT2014GSK026288

PATIENT
  Age: 39 Year
  Sex: Male

DRUGS (2)
  1. GLUCOCORTICOID [Concomitant]
     Active Substance: UNSPECIFIED INGREDIENT
     Indication: PSORIASIS
  2. BUPROPION [Suspect]
     Active Substance: BUPROPION
     Indication: EX-TOBACCO USER
     Dosage: UNK

REACTIONS (4)
  - Erythema [Recovered/Resolved]
  - Erythrodermic psoriasis [Recovered/Resolved]
  - Rash pustular [Recovered/Resolved]
  - Oedema [Recovered/Resolved]
